FAERS Safety Report 16375234 (Version 1)
Quarter: 2019Q2

REPORT INFORMATION
  Report Type: Spontaneous
  Country: UY (occurrence: UY)
  Receive Date: 20190531
  Receipt Date: 20190531
  Transmission Date: 20190711
  Serious: Yes (Hospitalization, Other)
  Sender: FDA-Public Use
  Company Number: UY-ABBVIE-19K-168-2801266-00

PATIENT
  Sex: Male

DRUGS (2)
  1. VENCLEXTA [Suspect]
     Active Substance: VENETOCLAX
     Indication: MYELOID LEUKAEMIA
     Route: 048
     Dates: start: 201905
  2. CYTARABINE. [Concomitant]
     Active Substance: CYTARABINE
     Indication: MYELOID LEUKAEMIA
     Dosage: LOW DOSE

REACTIONS (4)
  - Fluid overload [Unknown]
  - Device related infection [Unknown]
  - Pulmonary oedema [Recovered/Resolved]
  - Off label use [Unknown]

NARRATIVE: CASE EVENT DATE: 201905
